FAERS Safety Report 8026858-5 (Version None)
Quarter: 2012Q1

REPORT INFORMATION
  Report Type: 
  Country: None (occurrence: None)
  Receive Date: 20120106
  Receipt Date: 20120103
  Transmission Date: 20120608
  Serious: No
  Sender: FDA-Public Use
  Company Number: US-PFIZER INC-2011054379

PATIENT
  Sex: Male

DRUGS (4)
  1. LYRICA [Suspect]
     Indication: NEURALGIA
     Dosage: 50 MG, 3X/DAY
     Dates: start: 20110301, end: 20110501
  2. LYRICA [Suspect]
     Dosage: 150 MG, 3X/DAY
     Dates: start: 20110501
  3. OXCARBAZEPINE [Concomitant]
     Indication: NEURALGIA
     Dosage: 150 MG, 2X/DAY
  4. LYRICA [Suspect]
     Indication: NERVE INJURY
     Dosage: 50 MG, 2X/DAY
     Dates: start: 20101101, end: 20110301

REACTIONS (2)
  - DRUG INEFFECTIVE [None]
  - WEIGHT INCREASED [None]
